FAERS Safety Report 5031765-6 (Version None)
Quarter: 2006Q2

REPORT INFORMATION
  Report Type: 
  Country: None (occurrence: None)
  Receive Date: 20060619
  Receipt Date: 20051227
  Transmission Date: 20061013
  Serious: Yes (Death)
  Sender: FDA-Public Use
  Company Number: 2006-143755-NL

PATIENT
  Age: 85 Year
  Sex: Male

DRUGS (11)
  1. DANAPAROID SODIUM [Suspect]
     Indication: DISSEMINATED INTRAVASCULAR COAGULATION
     Route: 042
     Dates: start: 20050202, end: 20050227
  2. CIPROFLOXACIN HYDROCHLORIDE [Concomitant]
  3. IMMUNE GLOBULIN INTRAVENOUS (HUMAN) [Concomitant]
  4. MICAFUNGIN SODIUM [Concomitant]
  5. PLASMA PROTEIN FRACTION (HUMAN) [Concomitant]
  6. GABEXATE MESILATE [Concomitant]
  7. PLATELETS [Concomitant]
  8. MINOCYCLINE HYDROCHLORIDE [Concomitant]
  9. CEFPIROME SULFATE [Concomitant]
  10. SULPERAZON [Concomitant]
  11. TEICOPLANIN [Concomitant]

REACTIONS (2)
  - CONDITION AGGRAVATED [None]
  - HAEMORRHAGE [None]
